FAERS Safety Report 7086678-5 (Version None)
Quarter: 2010Q4

REPORT INFORMATION
  Report Type: 
  Country: None (occurrence: None)
  Receive Date: 20101105
  Receipt Date: 20101025
  Transmission Date: 20110411
  Serious: Yes (Other)
  Sender: FDA-Public Use
  Company Number: BR-ELI_LILLY_AND_COMPANY-BR201010006096

PATIENT
  Sex: Female
  Weight: 64 kg

DRUGS (1)
  1. HUMALOG MIX 50/50 [Suspect]
     Indication: DIABETES MELLITUS
     Dosage: 20 IU, 3/D
     Route: 058

REACTIONS (2)
  - CATARACT [None]
  - VISUAL ACUITY REDUCED [None]
